FAERS Safety Report 16666360 (Version 2)
Quarter: 2020Q4

REPORT INFORMATION
  Report Type: Report from Study
  Country: US (occurrence: US)
  Receive Date: 20190805
  Receipt Date: 20201123
  Transmission Date: 20210113
  Serious: Yes (Hospitalization)
  Sender: FDA-Public Use
  Company Number: US-ROCHE-2306521

PATIENT
  Age: 61 Year
  Sex: Female
  Weight: 90.7 kg

DRUGS (5)
  1. ATEZOLIZUMAB. [Suspect]
     Active Substance: ATEZOLIZUMAB
     Indication: FALLOPIAN TUBE CANCER
     Dosage: MOST RECENT DOSE WAS ON 14/SEP/2018?MOST RECENT DOSE ON 26/OCT/2018 (1600 MG)?800 MG IV OVER 1 HOUR
     Route: 042
     Dates: start: 20180914
  2. LIPOSOMAL DOXORUBICIN [Suspect]
     Active Substance: DOXORUBICIN HYDROCHLORIDE
     Indication: FALLOPIAN TUBE CANCER
     Dosage: MOST RECENT DOSE WAS ON 14/SEP/2018
     Route: 042
     Dates: start: 20180914
  3. TYLENOL [Concomitant]
     Active Substance: ACETAMINOPHEN
  4. BEVACIZUMAB. [Suspect]
     Active Substance: BEVACIZUMAB
     Indication: FALLOPIAN TUBE CANCER
     Dosage: MOST RECENT DOSE WAS ON 14/SEP/2018?MOST RECENT DOSE WAS ON 26/OCT/2018 (2000 MG)?OVER 90 MINUTES ON
     Route: 042
     Dates: start: 20180914
  5. KEFLEX [Concomitant]
     Active Substance: CEPHALEXIN

REACTIONS (4)
  - Stomatitis [Recovered/Resolved]
  - Fatigue [Recovered/Resolved]
  - Rectal haemorrhage [Recovered/Resolved]
  - Fatigue [Recovering/Resolving]

NARRATIVE: CASE EVENT DATE: 20180922
